FAERS Safety Report 23106059 (Version 1)
Quarter: 2023Q4

REPORT INFORMATION
  Report Type: Spontaneous
  Country: None (occurrence: GB)
  Receive Date: 20231025
  Receipt Date: 20231025
  Transmission Date: 20240110
  Serious: Yes (Life-Threatening, Hospitalization, Other)
  Sender: FDA-Public Use
  Company Number: GB-Breckenridge Pharmaceutical, Inc.-2147462

PATIENT
  Sex: Male

DRUGS (17)
  1. LANSOPRAZOLE [Suspect]
     Active Substance: LANSOPRAZOLE
  2. POTASSIUM HYDROXIDE\POTASSIUM PHOSPHATE, DIBASIC\SODIUM PHOSPHATE, DIB [Suspect]
     Active Substance: POTASSIUM HYDROXIDE\POTASSIUM PHOSPHATE, DIBASIC\SODIUM PHOSPHATE, DIBASIC, ANHYDROUS
  3. ALFENTANIL [Suspect]
     Active Substance: ALFENTANIL
  4. DOXYCYCLINE [Suspect]
     Active Substance: DOXYCYCLINE
  5. GABAPENTIN [Concomitant]
     Active Substance: GABAPENTIN
  6. GENTAMICIN [Concomitant]
     Active Substance: GENTAMICIN
  7. HARTMANN^S SOLUTION (POTASSIUM CHLORIDE; SODIUM CHLORIDE; CALCIUM CHLO [Concomitant]
  8. HEPARIN [Suspect]
     Active Substance: HEPARIN SODIUM
  9. LEVOFLOXACIN [Suspect]
     Active Substance: LEVOFLOXACIN
  10. MEROPENEM [Suspect]
     Active Substance: MEROPENEM
  11. NICOTINE [Concomitant]
     Active Substance: NICOTINE
  12. NOREPINEPHRINE [Concomitant]
     Active Substance: NOREPINEPHRINE
  13. OMEPRAZOLE [Suspect]
     Active Substance: OMEPRAZOLE
  14. OXYCODONE. [Concomitant]
     Active Substance: OXYCODONE HYDROCHLORIDE
  15. PABRINEX (NICOTINAMIDE;?ANHYDROUS GLUCOSE; RIBOFLAVIN?SODIUM PHOSPHATE [Concomitant]
  16. SODIUM ACID PHOSPHATE ANHYDROUS [Concomitant]
  17. PROPOFOL [Suspect]
     Active Substance: PROPOFOL

REACTIONS (1)
  - Methaemoglobinaemia [Recovered/Resolved]
